FAERS Safety Report 4355494-7 (Version None)
Quarter: 2004Q2

REPORT INFORMATION
  Report Type: 
  Country: None (occurrence: None)
  Receive Date: 20040505
  Receipt Date: 20040422
  Transmission Date: 20050107
  Serious: Yes (Hospitalization)
  Sender: FDA-Public Use
  Company Number: 2004027762

PATIENT
  Age: 33 Year
  Sex: Female

DRUGS (3)
  1. CARDURA [Suspect]
     Indication: ILL-DEFINED DISORDER
     Dosage: 4 MG (2MG, 2 IN 1 D), ORAL
     Route: 048
     Dates: start: 20010401, end: 20021001
  2. ENALAPRIL MALEATE [Concomitant]
  3. VENLAFAXINE HCL [Concomitant]

REACTIONS (1)
  - MAJOR DEPRESSION [None]
